FAERS Safety Report 9603728 (Version 1)
Quarter: 2013Q4

REPORT INFORMATION
  Report Type: Report from Study
  Country: CA (occurrence: CA)
  Receive Date: 20131007
  Receipt Date: 20131007
  Transmission Date: 20140711
  Serious: Yes (Hospitalization)
  Sender: FDA-Public Use
  Company Number: CA-ROCHE-1284626

PATIENT
  Age: 49 Year
  Sex: Female

DRUGS (8)
  1. BEVACIZUMAB [Suspect]
     Indication: PRODUCT USED FOR UNKNOWN INDICATION
     Route: 042
  2. DOCETAXEL [Suspect]
     Indication: PRODUCT USED FOR UNKNOWN INDICATION
     Route: 042
  3. ATIVAN [Concomitant]
     Route: 065
  4. DEXAMETHASONE [Concomitant]
     Route: 065
  5. NERISONE [Concomitant]
     Route: 065
  6. RABEPRAZOLE [Concomitant]
     Route: 065
  7. TYLENOL [Concomitant]
     Route: 065
  8. ZOFRAN [Concomitant]
     Route: 065

REACTIONS (1)
  - Pleural effusion [Not Recovered/Not Resolved]
